FAERS Safety Report 6518431 (Version 2)
Quarter: 2013Q1

REPORT INFORMATION
  Report Type: Spontaneous
  Country: GB (occurrence: GB)
  Receive Date: 20080103
  Receipt Date: 20130326
  Transmission Date: 20140127
  Serious: Yes (Disabling)
  Sender: FDA-Public Use
  Company Number: GB-TEVA-160837ISR

PATIENT
  Age: 55 Year
  Sex: Female

DRUGS (2)
  1. ATENOLOL [Suspect]
  2. NAPROXEN [Suspect]

REACTIONS (4)
  - Lichenoid keratosis [Not Recovered/Not Resolved]
  - Lichenoid keratosis [Not Recovered/Not Resolved]
  - Stomatitis [Not Recovered/Not Resolved]
  - Cutaneous lupus erythematosus [Not Recovered/Not Resolved]
